FAERS Safety Report 25465303 (Version 1)
Quarter: 2025Q2

REPORT INFORMATION
  Report Type: Report from Study
  Country: AR (occurrence: AR)
  Receive Date: 20250622
  Receipt Date: 20250622
  Transmission Date: 20250717
  Serious: Yes (Other)
  Sender: ABBVIE
  Company Number: AR-ABBVIE-6337991

PATIENT
  Age: 46 Year
  Sex: Female

DRUGS (3)
  1. RINVOQ [Suspect]
     Active Substance: UPADACITINIB
     Indication: Rheumatoid arthritis
     Route: 048
     Dates: start: 20221024, end: 20250609
  2. FOLIC ACID [Concomitant]
     Active Substance: FOLIC ACID
     Indication: Product used for unknown indication
  3. ZDOROV [Concomitant]
     Indication: Product used for unknown indication

REACTIONS (9)
  - Tendon injury [Recovered/Resolved]
  - Pharyngitis [Recovered/Resolved]
  - Oropharyngeal pain [Recovered/Resolved]
  - Pruritus [Recovered/Resolved]
  - Pruritus allergic [Recovered/Resolved]
  - Gastrointestinal inflammation [Recovered/Resolved]
  - Laboratory test abnormal [Recovered/Resolved]
  - Arthralgia [Recovered/Resolved]
  - Blood glucose increased [Recovered/Resolved]

NARRATIVE: CASE EVENT DATE: 20250101
